FAERS Safety Report 4588378-X (Version None)
Quarter: 2005Q1

REPORT INFORMATION
  Report Type: 
  Country: None (occurrence: None)
  Receive Date: 20050222
  Receipt Date: 20050210
  Transmission Date: 20050727
  Serious: Yes (Life-Threatening, Hospitalization)
  Sender: FDA-Public Use
  Company Number: BR-JNJFOC-20041201127

PATIENT
  Age: 26 Year
  Sex: Female

DRUGS (3)
  1. HALDOL [Suspect]
     Indication: DRUG USE FOR UNKNOWN INDICATION
     Route: 049
  2. CARBAMAZEPINE [Suspect]
     Indication: UNEVALUABLE EVENT
     Route: 049
  3. PHENOBARBITAL [Suspect]
     Indication: UNEVALUABLE EVENT
     Route: 049

REACTIONS (2)
  - OVERDOSE [None]
  - SUICIDE ATTEMPT [None]
